FAERS Safety Report 12987836 (Version 9)
Quarter: 2018Q4

REPORT INFORMATION
  Report Type: Spontaneous
  Country: JP (occurrence: JP)
  Receive Date: 20161130
  Receipt Date: 20181220
  Transmission Date: 20190204
  Serious: Yes (Hospitalization)
  Sender: FDA-Public Use
  Company Number: PHJP2016JP034140

PATIENT
  Age: 22 Year
  Sex: Male
  Weight: 47 kg

DRUGS (1)
  1. GILENYA [Suspect]
     Active Substance: FINGOLIMOD HYDROCHLORIDE
     Indication: MULTIPLE SCLEROSIS RELAPSE PROPHYLAXIS
     Dosage: 0.5 MG, QD
     Route: 048
     Dates: start: 20161012, end: 20161121

REACTIONS (16)
  - Neuromyelitis optica spectrum disorder [Recovering/Resolving]
  - Disorientation [Recovering/Resolving]
  - Oedema [Recovering/Resolving]
  - Electroencephalogram abnormal [Unknown]
  - Gait inability [Recovered/Resolved]
  - Delusion [Unknown]
  - Hiccups [Unknown]
  - Altered state of consciousness [Recovering/Resolving]
  - Somnolence [Unknown]
  - Hallucination, visual [Unknown]
  - Encephalitis [Unknown]
  - Diplegia [Unknown]
  - Cerebral atrophy [Unknown]
  - Paralysis [Unknown]
  - Language disorder [Unknown]
  - White matter lesion [Recovering/Resolving]

NARRATIVE: CASE EVENT DATE: 20161117
